FAERS Safety Report 5551897-3 (Version None)
Quarter: 2007Q4

REPORT INFORMATION
  Report Type: 
  Country: None (occurrence: None)
  Receive Date: 20071129
  Receipt Date: 20070418
  Transmission Date: 20080405
  Serious: Yes (Hospitalization, Other)
  Sender: FDA-Public Use
  Company Number: US200701001022

PATIENT
  Age: 38 Year
  Sex: Male
  Weight: 111.6 kg

DRUGS (1)
  1. ZYPREXA [Suspect]
     Dates: start: 20030601

REACTIONS (2)
  - CEREBROVASCULAR ACCIDENT [None]
  - DIABETES MELLITUS [None]
